FAERS Safety Report 4918001-3 (Version None)
Quarter: 2006Q1

REPORT INFORMATION
  Report Type: 
  Country: None (occurrence: None)
  Receive Date: 20060221
  Receipt Date: 20051026
  Transmission Date: 20060701
  Serious: Yes (Hospitalization, Disabling)
  Sender: FDA-Public Use
  Company Number: US-MERCK-0510USA09492

PATIENT
  Age: 47 Year
  Sex: Male
  Weight: 136 kg

DRUGS (16)
  1. HYDROCODONE HYDROCHLORIDE [Concomitant]
     Route: 065
     Dates: start: 20020601
  2. DEPO-MEDROL [Concomitant]
     Route: 051
  3. SPORANOX [Concomitant]
     Route: 065
  4. MARCAINE [Concomitant]
     Route: 051
  5. ARISTOSPAN [Concomitant]
     Route: 051
  6. LORTAB [Concomitant]
     Route: 065
  7. CELESTONE TAB [Concomitant]
     Route: 051
  8. ZOCOR [Concomitant]
     Route: 048
  9. METHOCARBAMOL [Concomitant]
     Route: 065
     Dates: start: 20000501
  10. VIOXX [Suspect]
     Route: 048
     Dates: start: 20010102, end: 20021217
  11. LORCET-HD [Concomitant]
     Route: 065
     Dates: start: 20000501
  12. ASPIRIN [Concomitant]
     Route: 065
     Dates: start: 19970101
  13. TOPROL-XL [Concomitant]
     Route: 048
     Dates: start: 19970101
  14. NORVASC [Concomitant]
     Route: 065
     Dates: start: 19950101
  15. GLUCOPHAGE [Concomitant]
     Route: 065
     Dates: start: 20010501
  16. GLUCOSAMINE [Concomitant]
     Route: 065

REACTIONS (5)
  - BLOOD CHOLESTEROL INCREASED [None]
  - BLOOD TRIGLYCERIDES INCREASED [None]
  - CORONARY ARTERY DISEASE [None]
  - DEPRESSION [None]
  - MYOCARDIAL INFARCTION [None]
